FAERS Safety Report 6453806-1 (Version None)
Quarter: 2009Q4

REPORT INFORMATION
  Report Type: 
  Country: None (occurrence: None)
  Receive Date: 20091123
  Receipt Date: 20091123
  Transmission Date: 20100525
  Serious: No
  Sender: FDA-Public Use
  Company Number: None

PATIENT
  Age: 62 Year
  Sex: Female
  Weight: 102.0593 kg

DRUGS (1)
  1. ZICAM COLD REMEDY GEL SWABS ZICAM GLUCONICUM 2X ZICAM, LLC [Suspect]
     Indication: NASOPHARYNGITIS
     Dosage: 1 SWAB EVERY 4 HOURS NASAL
     Route: 045
     Dates: start: 20080915, end: 20090215

REACTIONS (2)
  - HYPOGEUSIA [None]
  - HYPOSMIA [None]
